FAERS Safety Report 24953283 (Version 1)
Quarter: 2025Q1

REPORT INFORMATION
  Report Type: Spontaneous
  Country: US (occurrence: US)
  Receive Date: 20250211
  Receipt Date: 20250211
  Transmission Date: 20250409
  Serious: No
  Sender: CSL BEHRING
  Company Number: US-BEH-2025193979

PATIENT
  Age: 66 Year
  Sex: Female

DRUGS (2)
  1. HIZENTRA [Suspect]
     Active Substance: HUMAN IMMUNOGLOBULIN G
     Dosage: 16 G, QOW
     Route: 065
     Dates: start: 2024
  2. HIZENTRA [Suspect]
     Active Substance: HUMAN IMMUNOGLOBULIN G
     Dosage: 12 G, QOW
     Route: 065
     Dates: start: 2024

REACTIONS (6)
  - Skin burning sensation [Recovered/Resolved]
  - Burning sensation [Recovered/Resolved]
  - Insomnia [Unknown]
  - Discomfort [Unknown]
  - Skin burning sensation [Recovered/Resolved]
  - Burning sensation [Recovered/Resolved]

NARRATIVE: CASE EVENT DATE: 20240101
